FAERS Safety Report 5935395-0 (Version None)
Quarter: 2008Q4

REPORT INFORMATION
  Report Type: 
  Country: None (occurrence: None)
  Receive Date: 20081030
  Receipt Date: 20081022
  Transmission Date: 20090506
  Serious: Yes (Hospitalization)
  Sender: FDA-Public Use
  Company Number: JP-SOLVAY-00308004673

PATIENT
  Age: 27211 Day
  Sex: Female
  Weight: 34 kg

DRUGS (45)
  1. URSO 250 [Concomitant]
     Indication: HEPATIC FUNCTION ABNORMAL
     Dosage: DAILY DOSE: 300 MILLIGRAM(S)
     Route: 048
     Dates: start: 20080430
  2. CREON [Suspect]
     Indication: PANCREATECTOMY
     Dosage: DAILY DOSE: 12 DOSAGE FORM
     Route: 048
     Dates: start: 20080430, end: 20080501
  3. CREON [Suspect]
     Dosage: DAILY DOSE: 14 DOSAGE FORM (2 TO 4 CAPSULES)
     Route: 048
     Dates: start: 20080502, end: 20080502
  4. CREON [Suspect]
     Dosage: DAILY DOSE: 12 DOSAGE FORM
     Route: 048
     Dates: start: 20080503, end: 20080527
  5. CREON [Suspect]
     Dosage: DAILY DOSE: 8 DOSAGE FORM
     Route: 048
     Dates: start: 20080528, end: 20080528
  6. CREON [Suspect]
     Dosage: DAILY DOSE: 12 DOSAGE FORM
     Route: 048
     Dates: start: 20080529, end: 20080530
  7. CREON [Suspect]
     Dosage: DAILY DOSE: 14 DOSAGE FORM
     Route: 048
     Dates: start: 20080531, end: 20080531
  8. CREON [Suspect]
     Dosage: DAILY DOSE: 12 DOSAGE FORM
     Route: 048
     Dates: start: 20080601, end: 20080624
  9. CREON [Suspect]
     Dosage: DAILY DOSE: 8 DOSAGE FORM
     Route: 048
     Dates: start: 20080625, end: 20080625
  10. CREON [Suspect]
     Dosage: DAILY DOSE: 12 DOSAGE FORM
     Route: 048
     Dates: start: 20080626, end: 20080711
  11. CREON [Suspect]
     Dosage: DAILY DOSE: 14 DOSAGE FORM, AS USED: 2 TO 4 CAPSULES
     Route: 048
     Dates: start: 20080712, end: 20080712
  12. CREON [Suspect]
     Dosage: DAILY DOSE: 12 DOSAGE FORM
     Route: 048
     Dates: start: 20080713, end: 20080722
  13. CREON [Suspect]
     Dosage: DAILY DOSE: 8 DOSAGE FORM
     Route: 048
     Dates: start: 20080723, end: 20080723
  14. CREON [Suspect]
     Dosage: DAILY DOSE: 12 DOSAGE FORM
     Route: 048
     Dates: start: 20080724, end: 20080819
  15. CREON [Suspect]
     Dosage: DAILY DOSE: 8 DOSAGE FORM
     Route: 048
     Dates: start: 20080820, end: 20080820
  16. CREON [Suspect]
     Dosage: DAILY DOSE: 12 DOSAGE FORM
     Route: 048
     Dates: start: 20080821, end: 20080924
  17. CREON [Suspect]
     Dosage: DAILY DOSE: 8 DOSAGE FORM
     Route: 048
     Dates: start: 20080925, end: 20080925
  18. CREON [Suspect]
     Dosage: DAILY DOSE: 12 DOSAGE FORM
     Route: 048
     Dates: start: 20080926, end: 20080930
  19. CREON [Suspect]
     Dosage: DAILY DOSE: 4 DOSAGE FORM
     Route: 048
     Dates: start: 20081001, end: 20081001
  20. CREON [Suspect]
     Dosage: DAILY DOSE: 12 DOSAGE FORM
     Route: 048
     Dates: start: 20081002, end: 20081006
  21. CREON [Suspect]
     Dosage: DAILY DOSE: 4 DOSAGE FORM
     Route: 048
     Dates: start: 20081007, end: 20081007
  22. CREON [Suspect]
     Dosage: DAILY DOSE: 12 DOSAGE FORM
     Route: 048
     Dates: start: 20081008, end: 20081009
  23. CREON [Suspect]
     Dosage: DAILY DOSE: 8 DOSAGE FORM
     Route: 048
     Dates: start: 20081010, end: 20081010
  24. CREON [Suspect]
     Dosage: DAILY DOSE: 12 DOSAGE FORM
     Route: 048
     Dates: start: 20081011, end: 20081011
  25. CREON [Suspect]
     Dosage: DAILY DOSE: 14 DOSAGE FORM, AS USED: 2 TO 4 CAPSULES
     Route: 048
     Dates: start: 20081012, end: 20081014
  26. CREON [Suspect]
     Dosage: DAILY DOSE: 12 DOSAGE FORM
     Route: 048
     Dates: start: 20081015
  27. BIO-THREE [Concomitant]
     Indication: DIARRHOEA
     Dosage: DAILY DOSE: 1.5 GRAM(S)
     Route: 048
     Dates: start: 20080430
  28. GASMOTIN [Concomitant]
     Indication: GASTRITIS ATROPHIC
     Dosage: DAILY DOSE: 15 MILLIGRAM(S)
     Route: 048
     Dates: start: 20080430
  29. ALTAT [Concomitant]
     Indication: GASTRITIS ATROPHIC
     Dosage: DAILY DOSE: 150 MILLIGRAM(S)
     Route: 048
     Dates: start: 20080430
  30. GASTROM [Concomitant]
     Indication: GASTRITIS ATROPHIC
     Dosage: DAILY DOSE: 3 GRAM(S)
     Route: 048
     Dates: start: 20080430
  31. MUCOSTA [Concomitant]
     Indication: GASTRITIS ATROPHIC
     Dosage: DAILY DOSE: 300 MILLIGRAM(S)
     Route: 048
     Dates: start: 20080430
  32. LOPECALD [Concomitant]
     Indication: DIARRHOEA
     Dosage: DAILY DOSE: 2 MILLIGRAM(S)
     Route: 048
     Dates: start: 20080430
  33. TS-1 [Concomitant]
     Indication: PANCREATIC CARCINOMA RECURRENT
     Dosage: DAILY DOSE: 3 DOSAGE FORM; AS USED: 1 OR 2 DOSAGE FORMS
     Route: 048
     Dates: start: 20080430, end: 20080527
  34. TS-1 [Concomitant]
     Dosage: DAILY DOSE: 3 DOSAGE FORM; AS USED: 1 OR 2 DOSAGE FORMS
     Route: 048
     Dates: start: 20080625, end: 20080722
  35. CYANOCOBALAMIN [Concomitant]
     Indication: ANGLE CLOSURE GLAUCOMA
     Dosage: DAILY DOSE: 1.5 GRAM(S)
     Route: 048
     Dates: start: 20080430
  36. KALLIKREIN [Concomitant]
     Indication: ANGLE CLOSURE GLAUCOMA
     Dosage: DAILY DOSE: 30 INTERNATIONAL UNIT(S)
     Route: 048
     Dates: start: 20080430
  37. JOLETHIN [Concomitant]
     Indication: ANGLE CLOSURE GLAUCOMA
     Dosage: DAILY DOSE: 600 MICROGRAM(S)
     Route: 048
     Dates: start: 20080430
  38. KARY UNI [Concomitant]
     Indication: CATARACT
     Dosage: DAILY DOSE:  ADEQUATE DOSE; FREQUENCY: FOUR TIMES A DAY
     Route: 031
     Dates: start: 20080430
  39. HYALEIN [Concomitant]
     Indication: DRY EYE
     Dosage: DAILY DOSE:  ADEQUATE DOSE; FREQUENCY: FOUR TIMES A DAY
     Route: 031
     Dates: start: 20080430
  40. ELCITONIN [Concomitant]
     Indication: OSTEOPOROSIS
     Dosage: DAILY DOSE: 1 DOSAGE FORM; FREQUENCY: ONCE A WEEK
     Route: 030
     Dates: start: 20080430
  41. SOLITA-T1 INJECTION [Concomitant]
     Indication: ENTEROCOLITIS VIRAL
     Dosage: DAILY DOSE: 200 MILLILITRE(S), FREQUENCY: ONCE.
     Route: 042
     Dates: start: 20080723, end: 20080723
  42. GLUCAGON [Concomitant]
     Indication: DIAGNOSTIC PROCEDURE
     Dosage: DAILY DOSE: 1 DOSAGE FORM, FREQUENCY: ONCE.
     Route: 030
     Dates: start: 20080925, end: 20080925
  43. XYLOCAINE [Concomitant]
     Indication: DIAGNOSTIC PROCEDURE
     Dosage: DAILY DOSE: 5 MILLILITRE(S), FREQUENCY: ONCE.
     Route: 065
     Dates: start: 20080925, end: 20080925
  44. PRONASE MS [Concomitant]
     Indication: DIAGNOSTIC PROCEDURE
     Dosage: DAILY DOSE: 2000 INTERNATIONAL UNIT(S), FREQUENCY: ONCE.
     Route: 048
     Dates: start: 20080925, end: 20080925
  45. BAROS ANTIFOAMING [Concomitant]
     Indication: DIAGNOSTIC PROCEDURE
     Dosage: DAILY DOSE: 10 MILLILITRE(S), FREQUENCY: ONCE.
     Route: 048
     Dates: start: 20080925, end: 20080925

REACTIONS (3)
  - ANAEMIA [None]
  - PANCREATIC CARCINOMA RECURRENT [None]
  - PYREXIA [None]
